FAERS Safety Report 10070311 (Version 1)
Quarter: 2014Q2

REPORT INFORMATION
  Report Type: Spontaneous
  Country: US (occurrence: None)
  Receive Date: 20140409
  Receipt Date: 20140409
  Transmission Date: 20141212
  Serious: Yes (Hospitalization)
  Sender: FDA-Public Use
  Company Number: None

PATIENT
  Age: 88 Year
  Sex: Male
  Weight: 122.5 kg

DRUGS (1)
  1. ASPIRIN [Suspect]
     Indication: THROMBOSIS PROPHYLAXIS
     Dosage: 81 MG, EVERY DAY, PO
     Route: 048
     Dates: start: 20140217, end: 20140227

REACTIONS (4)
  - Gastrointestinal haemorrhage [None]
  - Dizziness [None]
  - Anaemia [None]
  - Gastric ulcer [None]
